FAERS Safety Report 7164667-X (Version None)
Quarter: 2010Q4

REPORT INFORMATION
  Report Type: 
  Country: None (occurrence: None)
  Receive Date: 20101215
  Receipt Date: 20101206
  Transmission Date: 20110411
  Serious: Yes (Hospitalization)
  Sender: FDA-Public Use
  Company Number: BR-GENENTECH-311016

PATIENT
  Sex: Female

DRUGS (5)
  1. MABTHERA [Suspect]
     Indication: LYMPHOMA
     Dosage: UNK
     Route: 065
  2. CYCLOPHOSPHAMIDE [Concomitant]
     Indication: LYMPHOMA
     Dosage: UNK
  3. DOXORUBICIN [Concomitant]
     Indication: LYMPHOMA
     Dosage: UNK
  4. VINCRISTINE [Concomitant]
     Indication: LYMPHOMA
     Dosage: UNK
  5. PREDNISONE [Concomitant]
     Indication: LYMPHOMA
     Dosage: UNK

REACTIONS (3)
  - ABDOMINAL PAIN [None]
  - COLITIS [None]
  - LEUKOCYTOSIS [None]
